FAERS Safety Report 4606426-5 (Version None)
Quarter: 2005Q2

REPORT INFORMATION
  Report Type: 
  Country: None (occurrence: None)
  Receive Date: 20050223
  Receipt Date: 20041022
  Transmission Date: 20051028
  Serious: Yes (Life-Threatening, Hospitalization, Disabling, Other)
  Sender: FDA-Public Use
  Company Number: WAES 0410USA003565

PATIENT
  Age: 76 Year
  Sex: Female
  Weight: 73.0291 kg

DRUGS (7)
  1. ZOCOR [Suspect]
     Indication: BLOOD CHOLESTEROL INCREASED
     Dosage: 40MG/ DAILY/ PO,  60MG/ DAILY/ PO,  80 MG /DAILY/ PO
     Route: 048
     Dates: start: 20011001, end: 20020101
  2. ZOCOR [Suspect]
     Indication: BLOOD CHOLESTEROL INCREASED
     Dosage: 40MG/ DAILY/ PO,  60MG/ DAILY/ PO,  80 MG /DAILY/ PO
     Route: 048
     Dates: start: 20040501, end: 20040501
  3. ZOCOR [Suspect]
     Indication: BLOOD CHOLESTEROL INCREASED
     Dosage: 40MG/ DAILY/ PO,  60MG/ DAILY/ PO,  80 MG /DAILY/ PO
     Route: 048
     Dates: start: 20020101, end: 20040519
  4. MIACALCIN [Concomitant]
  5. PRILOSEC [Concomitant]
  6. CAPTOPRIL [Concomitant]
  7. INSULIN [Concomitant]

REACTIONS (1)
  - RHABDOMYOLYSIS [None]
